FAERS Safety Report 7738202-9 (Version None)
Quarter: 2011Q3

REPORT INFORMATION
  Report Type: 
  Country: None (occurrence: None)
  Receive Date: 20110906
  Receipt Date: 20110823
  Transmission Date: 20111222
  Serious: Yes (Other)
  Sender: FDA-Public Use
  Company Number: 1000023250

PATIENT
  Sex: Male

DRUGS (2)
  1. ARICEPT [Concomitant]
  2. MEMANTINE [Suspect]
     Indication: DEMENTIA ALZHEIMER'S TYPE
     Dosage: 20 MG (20 MG, 1 IN 1 D), ORAL
     Route: 048
     Dates: start: 20110819

REACTIONS (3)
  - ABNORMAL BEHAVIOUR [None]
  - LIBIDO INCREASED [None]
  - POLLAKIURIA [None]
